FAERS Safety Report 7894480-7 (Version None)
Quarter: 2011Q4

REPORT INFORMATION
  Report Type: 
  Country: None (occurrence: None)
  Receive Date: 20111106
  Receipt Date: 20110822
  Transmission Date: 20120403
  Serious: No
  Sender: FDA-Public Use
  Company Number: US-AMGEN-USASP2011042637

PATIENT
  Sex: Female

DRUGS (14)
  1. TRETINOIN GEL 0.025% [Concomitant]
  2. ENBREL [Suspect]
     Indication: PRODUCT USED FOR UNKNOWN INDICATION
     Dosage: 50 MG, QWK
     Route: 058
  3. OXYCONTIN [Concomitant]
     Dosage: 60 MG, UNK
  4. TUMS CHW [Concomitant]
     Dosage: 500 MG, UNK
  5. PRILOSEC [Concomitant]
     Dosage: 20 MG, UNK
  6. CYMBALTA [Concomitant]
     Dosage: 20 MG, UNK
  7. PHENERGAN HCL [Concomitant]
     Dosage: 25 MG, UNK
  8. XANAX [Concomitant]
     Dosage: 1 MG, UNK
  9. PREDNISONE [Concomitant]
     Dosage: 2.5 MG, UNK
  10. VITAMIN B-12 [Concomitant]
  11. ADDERALL XR 10 [Concomitant]
     Dosage: 30 MG, UNK
  12. OXYCODONE HCL [Concomitant]
     Dosage: 5 MG, UNK
  13. ASPIRIN [Concomitant]
     Dosage: 81 MG, UNK
  14. STOOL SOFTNER LAXATIVE [Concomitant]

REACTIONS (2)
  - ARTHRALGIA [None]
  - NAUSEA [None]
